FAERS Safety Report 9270917 (Version 1)
Quarter: 2013Q2

REPORT INFORMATION
  Report Type: Spontaneous
  Country: GB (occurrence: GB)
  Receive Date: 20130506
  Receipt Date: 20130506
  Transmission Date: 20140414
  Serious: Yes (Other)
  Sender: FDA-Public Use
  Company Number: GB-AMGEN-GBRSP2013030541

PATIENT
  Age: 81 Year
  Sex: Female
  Weight: 72 kg

DRUGS (3)
  1. PROLIA [Suspect]
     Indication: OSTEOPOROSIS
     Dosage: 60 MG, Q6MO
     Route: 058
     Dates: start: 20111013, end: 201301
  2. IBUPROFEN [Concomitant]
  3. PARACETAMOL [Concomitant]

REACTIONS (2)
  - Alopecia [Not Recovered/Not Resolved]
  - Thermal burn [Not Recovered/Not Resolved]
